FAERS Safety Report 12703388 (Version 1)
Quarter: 2016Q3

REPORT INFORMATION
  Report Type: Spontaneous
  Country: US (occurrence: US)
  Receive Date: 20160831
  Receipt Date: 20160831
  Transmission Date: 20161109
  Serious: Yes (Other)
  Sender: FDA-Public Use
  Company Number: US-JNJFOC-20160823158

PATIENT

DRUGS (2)
  1. TRETINOIN. [Concomitant]
     Active Substance: TRETINOIN
     Indication: ACUTE PROMYELOCYTIC LEUKAEMIA
     Route: 065
  2. DOXORUBICIN HYDROCHLORIDE. [Suspect]
     Active Substance: DOXORUBICIN HYDROCHLORIDE
     Indication: ACUTE PROMYELOCYTIC LEUKAEMIA
     Dosage: MEDIAN CUMULATIVE DOSE, RANGE (0-792)
     Route: 065

REACTIONS (11)
  - Impaired work ability [Unknown]
  - Left ventricular hypertrophy [Unknown]
  - Cardiotoxicity [Unknown]
  - Palpitations [Unknown]
  - Syncope [Unknown]
  - Off label use [Unknown]
  - Product use issue [Unknown]
  - Anxiety [Unknown]
  - Dizziness [Unknown]
  - Depression [Unknown]
  - Cardiac failure congestive [Unknown]
